FAERS Safety Report 7415766-6 (Version None)
Quarter: 2011Q2

REPORT INFORMATION
  Report Type: 
  Country: None (occurrence: None)
  Receive Date: 20110406
  Receipt Date: 20110404
  Transmission Date: 20111010
  Serious: Yes (Death)
  Sender: FDA-Public Use
  Company Number: 2011SP010994

PATIENT
  Age: 54 Year
  Sex: Female
  Weight: 40 kg

DRUGS (5)
  1. AVELOX [Concomitant]
  2. TEMODAL [Suspect]
     Indication: MALIGNANT GLIOMA
     Dosage: 100 MG;QD;PO
     Route: 048
     Dates: start: 20110221, end: 20110306
  3. PREDNISOLONE [Suspect]
     Indication: IDIOPATHIC THROMBOCYTOPENIC PURPURA
     Dosage: 60 MG;PO
     Route: 048
     Dates: start: 20110128, end: 20110222
  4. COTRIM [Concomitant]
  5. NEORAL [Suspect]
     Indication: IDIOPATHIC THROMBOCYTOPENIC PURPURA
     Dosage: 200 MG;QD;PO
     Route: 048
     Dates: start: 20110209, end: 20110222

REACTIONS (4)
  - PNEUMONIA CYTOMEGALOVIRAL [None]
  - MYDRIASIS [None]
  - INTERSTITIAL LUNG DISEASE [None]
  - PNEUMOCYSTIS JIROVECI PNEUMONIA [None]
